FAERS Safety Report 5363959-4 (Version None)
Quarter: 2007Q2

REPORT INFORMATION
  Report Type: 
  Country: None (occurrence: None)
  Receive Date: 20070620
  Receipt Date: 20070608
  Transmission Date: 20071010
  Serious: Yes (Hospitalization)
  Sender: FDA-Public Use
  Company Number: HQWYE544408JUN07

PATIENT
  Sex: Female

DRUGS (3)
  1. PANTOZOL [Suspect]
     Indication: REFLUX OESOPHAGITIS
     Route: 048
     Dates: start: 20070101, end: 20070101
  2. PANTOZOL [Suspect]
     Route: 048
     Dates: start: 20070101, end: 20070228
  3. AZITHROMYCIN [Concomitant]
     Indication: CHRONIC OBSTRUCTIVE PULMONARY DISEASE
     Dosage: ^DF SOME DAY FOR A TOTAL OF SIX TABLETS^
     Route: 048
     Dates: end: 20070101

REACTIONS (2)
  - BILE DUCT STONE [None]
  - HEPATITIS TOXIC [None]
